FAERS Safety Report 23519136 (Version 3)
Quarter: 2024Q1

REPORT INFORMATION
  Report Type: Spontaneous
  Country: DE (occurrence: DE)
  Receive Date: 20240213
  Receipt Date: 20240227
  Transmission Date: 20240410
  Serious: Yes (Other)
  Sender: FDA-Public Use
  Company Number: DE-BAUSCH-BL-2024-001985

PATIENT
  Age: 6 Month
  Sex: Female
  Weight: 6.3 kg

DRUGS (13)
  1. HYDROCORTISONE [Suspect]
     Active Substance: HYDROCORTISONE
     Indication: Adrenal insufficiency
     Dosage: LOADING DOSE
     Route: 065
     Dates: start: 2023, end: 2023
  2. HYDROCORTISONE [Suspect]
     Active Substance: HYDROCORTISONE
     Dosage: OVER 24 H
     Route: 051
     Dates: start: 2023, end: 2023
  3. HYDROCORTISONE [Suspect]
     Active Substance: HYDROCORTISONE
     Indication: Adrenal insufficiency
     Dosage: REDUCED DOSAGE
     Route: 048
     Dates: start: 2023, end: 2023
  4. AMPICILLIN [Concomitant]
     Active Substance: AMPICILLIN
     Indication: Evidence based treatment
     Route: 051
     Dates: start: 2023, end: 2023
  5. CEFTAZIDIME [Concomitant]
     Active Substance: CEFTAZIDIME
     Indication: Evidence based treatment
     Route: 051
     Dates: start: 2023, end: 2023
  6. PIPERACILLIN AND TAZOBACTAM [Concomitant]
     Active Substance: PIPERACILLIN SODIUM\TAZOBACTAM SODIUM
     Indication: Klebsiella infection
     Route: 051
     Dates: start: 2023, end: 2023
  7. CEFTAZIDIME [Concomitant]
     Active Substance: CEFTAZIDIME
     Indication: Klebsiella infection
     Route: 051
     Dates: start: 2023, end: 2023
  8. SULFAMETHOXAZOLE\TRIMETHOPRIM [Concomitant]
     Active Substance: SULFAMETHOXAZOLE\TRIMETHOPRIM
     Indication: Antibiotic therapy
     Route: 048
     Dates: start: 2023, end: 2023
  9. CEFPODOXIME [Concomitant]
     Active Substance: CEFPODOXIME
     Indication: Antibiotic therapy
     Route: 048
     Dates: start: 2023, end: 2023
  10. SODIUM [Concomitant]
     Active Substance: SODIUM
     Indication: Supplementation therapy
     Dosage: GREATER THAN 8 MMOL/KG/D
     Route: 042
     Dates: start: 2023, end: 2023
  11. SODIUM [Concomitant]
     Active Substance: SODIUM
     Dosage: GREATER THAN 2 MMOL/KG/D
     Route: 042
     Dates: start: 2023, end: 2023
  12. SODIUM [Concomitant]
     Active Substance: SODIUM
     Dosage: LESS THAN 2 MMOL/KG/D
     Route: 042
     Dates: start: 2023, end: 2023
  13. SODIUM [Concomitant]
     Active Substance: SODIUM
     Dosage: GREATER THAN 2 MMOL/KG/D
     Route: 042
     Dates: start: 2023, end: 2023

REACTIONS (2)
  - Bradycardia [Recovered/Resolved]
  - Hypertension [Recovered/Resolved]

NARRATIVE: CASE EVENT DATE: 20230101
